FAERS Safety Report 7989251-7 (Version None)
Quarter: 2011Q4

REPORT INFORMATION
  Report Type: 
  Country: None (occurrence: None)
  Receive Date: 20111219
  Receipt Date: 20111202
  Transmission Date: 20120403
  Serious: No
  Sender: FDA-Public Use
  Company Number: US-ROXANE LABORATORIES, INC.-2011-RO-01764RO

PATIENT
  Sex: Female
  Weight: 61 kg

DRUGS (6)
  1. LEVOTHYROXINE SODIUM [Concomitant]
     Indication: HYPOTHYROIDISM
     Dosage: 50 MCG
  2. BYSTOLIC [Concomitant]
     Indication: HYPERTENSION
     Dosage: 5 MG
  3. AROMASIN [Suspect]
     Indication: BREAST CANCER
     Dates: start: 20090801, end: 20110101
  4. NAPROXEN (ALEVE) [Suspect]
     Indication: PAIN
  5. AMLODIPINE [Concomitant]
     Indication: HYPERTENSION
     Dosage: 5 MG
  6. EXEMESTANE [Suspect]
     Indication: BREAST CANCER
     Dosage: 25 MG
     Dates: start: 20110101, end: 20111116

REACTIONS (3)
  - ABDOMINAL DISCOMFORT [None]
  - OSTEOPOROSIS [None]
  - ARTHRALGIA [None]
